FAERS Safety Report 6998232-1 (Version None)
Quarter: 2010Q3

REPORT INFORMATION
  Report Type: 
  Country: None (occurrence: None)
  Receive Date: 20100920
  Receipt Date: 20070802
  Transmission Date: 20110219
  Serious: No
  Sender: FDA-Public Use
  Company Number: US-ASTRAZENECA-2006UW08460

PATIENT
  Age: 50 Year
  Sex: Female
  Weight: 97.5 kg

DRUGS (10)
  1. SEROQUEL [Suspect]
     Indication: BIPOLAR DISORDER
     Route: 048
     Dates: start: 20000101
  2. SEROQUEL [Suspect]
     Route: 048
     Dates: start: 20010730
  3. RISPERIDONE [Concomitant]
  4. BUSPAR [Concomitant]
  5. TRILEPTAL [Concomitant]
     Dates: start: 20050930
  6. EFFEXOR XR [Concomitant]
     Dosage: 75 MG, TWO IN THE MORNING AND ONE AT BEDTIME
     Dates: start: 20050930
  7. LIPITOR [Concomitant]
     Dates: start: 20020918
  8. GLUCOPHAGE [Concomitant]
     Dates: start: 20070523
  9. CRESTOR [Concomitant]
     Dates: start: 20070523
  10. ACTOS [Concomitant]
     Dates: start: 20070523

REACTIONS (6)
  - BLOOD CHOLESTEROL INCREASED [None]
  - BLOOD TRIGLYCERIDES INCREASED [None]
  - CHRONIC OBSTRUCTIVE PULMONARY DISEASE [None]
  - DIABETES MELLITUS [None]
  - TYPE 2 DIABETES MELLITUS [None]
  - WEIGHT INCREASED [None]
